FAERS Safety Report 19474455 (Version 1)
Quarter: 2021Q2

REPORT INFORMATION
  Report Type: Report from Study
  Country: BR (occurrence: BR)
  Receive Date: 20210629
  Receipt Date: 20210629
  Transmission Date: 20210717
  Serious: Yes (Other)
  Sender: FDA-Public Use
  Company Number: NVSC2019BR035655

PATIENT
  Age: 13 Year
  Sex: Male

DRUGS (1)
  1. OMNITROPE [Suspect]
     Active Substance: SOMATROPIN
     Indication: GROWTH HORMONE DEFICIENCY
     Dosage: 2.3 MG, QD
     Route: 058
     Dates: start: 201911

REACTIONS (4)
  - Injection site pain [Unknown]
  - Growth retardation [Not Recovered/Not Resolved]
  - Skin discolouration [Unknown]
  - Growth failure [Not Recovered/Not Resolved]

NARRATIVE: CASE EVENT DATE: 20191105
